FAERS Safety Report 23739069 (Version 1)
Quarter: 2024Q2

REPORT INFORMATION
  Report Type: Spontaneous
  Country: ES (occurrence: ES)
  Receive Date: 20240413
  Receipt Date: 20240413
  Transmission Date: 20240716
  Serious: Yes (Other)
  Sender: FDA-Public Use
  Company Number: ES-CELLTRION INC.-2024ES008461

PATIENT

DRUGS (1)
  1. INFLIXIMAB [Suspect]
     Active Substance: INFLIXIMAB
     Indication: Behcet^s syndrome
     Dosage: 350 MG, CYCLE
     Route: 042
     Dates: start: 20210302, end: 20210423

REACTIONS (4)
  - Respiratory distress [Recovered/Resolved]
  - Rash [Recovered/Resolved]
  - Chest discomfort [Recovered/Resolved]
  - Intentional product use issue [Unknown]

NARRATIVE: CASE EVENT DATE: 20210423
